FAERS Safety Report 4880802-8 (Version None)
Quarter: 2006Q1

REPORT INFORMATION
  Report Type: 
  Country: None (occurrence: None)
  Receive Date: 20060111
  Receipt Date: 20051019
  Transmission Date: 20060701
  Serious: Yes (Other)
  Sender: FDA-Public Use
  Company Number: 2004S1000082

PATIENT
  Age: 71 Year
  Weight: 91 kg

DRUGS (8)
  1. CUBICIN [Suspect]
     Indication: DEVICE RELATED INFECTION
     Dosage: 6 MG/KG;QD;IV
     Route: 042
     Dates: start: 20040405, end: 20040421
  2. CUBICIN [Suspect]
     Indication: STAPHYLOCOCCAL BACTERAEMIA
     Dosage: 6 MG/KG;QD;IV
     Route: 042
     Dates: start: 20040405, end: 20040421
  3. VANCOMYCIN [Concomitant]
  4. RIFAMPIN [Concomitant]
  5. FLOMAX [Concomitant]
  6. ACTOS [Concomitant]
  7. INSULIN [Concomitant]
  8. RESTORIL [Concomitant]

REACTIONS (4)
  - BLOOD CREATINE PHOSPHOKINASE INCREASED [None]
  - MUSCULAR WEAKNESS [None]
  - MYALGIA [None]
  - RHABDOMYOLYSIS [None]
